FAERS Safety Report 4936397-3 (Version None)
Quarter: 2006Q1

REPORT INFORMATION
  Report Type: 
  Country: None (occurrence: None)
  Receive Date: 20060127
  Receipt Date: 20051013
  Transmission Date: 20060701
  Serious: Yes (Other)
  Sender: FDA-Public Use
  Company Number: 2005143219

PATIENT
  Age: 57 Year
  Sex: Female

DRUGS (4)
  1. LYRICA [Suspect]
     Indication: PAIN IN EXTREMITY
     Dosage: 150 MG (50 MG 3 IN 1 D), ORAL
     Route: 048
     Dates: start: 20051010
  2. PAXIL [Concomitant]
  3. ATENOLOL [Concomitant]
  4. OXYBUTYNIN CHLORIDE [Concomitant]

REACTIONS (1)
  - SOMNOLENCE [None]
